FAERS Safety Report 6301282-1 (Version None)
Quarter: 2009Q3

REPORT INFORMATION
  Report Type: 
  Country: None (occurrence: None)
  Receive Date: 20090805
  Receipt Date: 20090805
  Transmission Date: 20100115
  Serious: Yes (Hospitalization)
  Sender: FDA-Public Use
  Company Number: None

PATIENT
  Sex: Female
  Weight: 68.0396 kg

DRUGS (8)
  1. CLEVIPREX [Suspect]
     Indication: HYPERTENSION
     Dosage: 1-2MG/HR, TITRATE TO SBP90-130 CONTINOUS IV DRIP
     Route: 041
     Dates: start: 20090414, end: 20090416
  2. AMIODARONE HCL [Concomitant]
  3. VERSED [Concomitant]
  4. NITROGLYCERIN [Concomitant]
  5. NIPRIDE [Concomitant]
  6. DOBUTAMINE HCL [Concomitant]
  7. EPINEPHRINE [Concomitant]
  8. LASIX [Concomitant]

REACTIONS (1)
  - NO ADVERSE EVENT [None]
